FAERS Safety Report 5709930-1 (Version None)
Quarter: 2008Q2

REPORT INFORMATION
  Report Type: 
  Country: None (occurrence: None)
  Receive Date: 20080418
  Receipt Date: 20080408
  Transmission Date: 20081010
  Serious: Yes (Death, Other)
  Sender: FDA-Public Use
  Company Number: AU-ELI_LILLY_AND_COMPANY-AU200804001656

PATIENT
  Age: 24 Year
  Sex: Female

DRUGS (3)
  1. CYMBALTA [Suspect]
     Indication: DEPRESSION
     Dosage: 60 MG, DAILY (1/D)
     Route: 048
     Dates: start: 20080405
  2. DEXAMFETAMINE [Concomitant]
     Dosage: 2 D/F, DAILY (1/D)
     Route: 048
  3. PARNATE [Concomitant]
     Dosage: UNK, UNKNOWN
     Route: 065

REACTIONS (4)
  - DEATH [None]
  - DELIRIUM [None]
  - NAUSEA [None]
  - VOMITING [None]
